FAERS Safety Report 24201890 (Version 1)
Quarter: 2024Q3

REPORT INFORMATION
  Report Type: Spontaneous
  Country: US (occurrence: US)
  Receive Date: 20240812
  Receipt Date: 20240812
  Transmission Date: 20241017
  Serious: Yes (Hospitalization)
  Sender: AMERICAN REGENT
  Company Number: US-AMERICAN REGENT INC-2024002843

PATIENT
  Age: 68 Year
  Sex: Female

DRUGS (1)
  1. PACLITAXEL [Suspect]
     Active Substance: PACLITAXEL
     Indication: Product used for unknown indication
     Dosage: WEEKLY TREATMENTS
     Route: 065
     Dates: start: 20230929, end: 20240705

REACTIONS (1)
  - Anaemia [Unknown]

NARRATIVE: CASE EVENT DATE: 20240722
